FAERS Safety Report 24282635 (Version 1)
Quarter: 2024Q3

REPORT INFORMATION
  Report Type: Spontaneous
  Country: US (occurrence: None)
  Receive Date: 20240902
  Receipt Date: 20240902
  Transmission Date: 20241017
  Serious: Yes (Other)
  Sender: Public
  Company Number: None

PATIENT
  Age: 37 Year
  Sex: Female
  Weight: 66.6 kg

DRUGS (5)
  1. QELBREE [Suspect]
     Active Substance: VILOXAZINE HYDROCHLORIDE
     Indication: Attention deficit hyperactivity disorder
     Dosage: 1 CAPSULE ORAL
     Route: 048
  2. FISH OIL [Concomitant]
     Active Substance: FISH OIL
  3. ZYRTEC [Concomitant]
     Active Substance: CETIRIZINE HYDROCHLORIDE
  4. TYROSINE [Concomitant]
     Active Substance: TYROSINE
  5. WOMEN-S MULTIVITAMIN [Concomitant]

REACTIONS (7)
  - Product dose omission in error [None]
  - Migraine [None]
  - Insomnia [None]
  - Headache [None]
  - Vomiting [None]
  - Impaired work ability [None]
  - Drug withdrawal syndrome [None]

NARRATIVE: CASE EVENT DATE: 20240829
